FAERS Safety Report 4357001-1 (Version None)
Quarter: 2004Q2

REPORT INFORMATION
  Report Type: 
  Country: None (occurrence: None)
  Receive Date: 20040507
  Receipt Date: 20040429
  Transmission Date: 20050107
  Serious: Yes (Hospitalization)
  Sender: FDA-Public Use
  Company Number: 676AD04003/QA#04059

PATIENT
  Age: 72 Year
  Sex: Female
  Weight: 57.1532 kg

DRUGS (9)
  1. METFORMIN HYDROCHLORIDE [Suspect]
     Indication: DIABETES MELLITUS
     Dosage: TWICE DAILY
  2. AGGRENOX(ASPIRIN/EXTENDED-RELEASE DIPYRIDAMOLE) [Concomitant]
  3. MOTRIN [Concomitant]
  4. GLYNASE [Concomitant]
  5. ACCUPRIL [Concomitant]
  6. INDAPAMIDE [Concomitant]
  7. AVAPRO [Concomitant]
  8. PLAVIX [Concomitant]
  9. PRILOSEC [Concomitant]

REACTIONS (6)
  - ANOREXIA [None]
  - BLOOD GLUCOSE INCREASED [None]
  - DIARRHOEA [None]
  - MALNUTRITION [None]
  - TRANSIENT ISCHAEMIC ATTACK [None]
  - WEIGHT DECREASED [None]
